FAERS Safety Report 17314611 (Version 3)
Quarter: 2021Q1

REPORT INFORMATION
  Report Type: Spontaneous
  Country: US (occurrence: US)
  Receive Date: 20200124
  Receipt Date: 20210210
  Transmission Date: 20210419
  Serious: Yes (Hospitalization, Other)
  Sender: FDA-Public Use
  Company Number: US-ASTRAZENECA-2020SE08253

PATIENT
  Age: 23720 Day
  Sex: Female
  Weight: 84.8 kg

DRUGS (48)
  1. NEXIUM [Suspect]
     Active Substance: ESOMEPRAZOLE MAGNESIUM
     Indication: GASTROOESOPHAGEAL REFLUX DISEASE
     Dosage: MR
     Route: 048
     Dates: start: 20090130
  2. AZITHROMYCIN ANHYDROUS. [Concomitant]
     Active Substance: AZITHROMYCIN ANHYDROUS
  3. HYDROCHLOROTHIAZIDE. [Concomitant]
     Active Substance: HYDROCHLOROTHIAZIDE
  4. CIPROFLOXACIN. [Concomitant]
     Active Substance: CIPROFLOXACIN
  5. BUPROPION. [Concomitant]
     Active Substance: BUPROPION
  6. SULFAMETHOXAZOLE [Concomitant]
     Active Substance: SULFAMETHOXAZOLE
  7. FLUCONAZOLE. [Concomitant]
     Active Substance: FLUCONAZOLE
  8. ZOLPIDEM [Concomitant]
     Active Substance: ZOLPIDEM TARTRATE
  9. PANTOPRAZOLE [Suspect]
     Active Substance: PANTOPRAZOLE
     Indication: GASTROOESOPHAGEAL REFLUX DISEASE
     Route: 065
     Dates: start: 2014
  10. LEVOTHYROXINE. [Concomitant]
     Active Substance: LEVOTHYROXINE
     Indication: THYROID DISORDER
     Dates: start: 2016
  11. PREMARIN [Concomitant]
     Active Substance: ESTROGENS, CONJUGATED
  12. METOPROLOL. [Concomitant]
     Active Substance: METOPROLOL
  13. LOSARTAN. [Concomitant]
     Active Substance: LOSARTAN
  14. ROZEREM [Concomitant]
     Active Substance: RAMELTEON
  15. OLOPATADINE. [Concomitant]
     Active Substance: OLOPATADINE
  16. SERTRALINE [Concomitant]
     Active Substance: SERTRALINE HYDROCHLORIDE
     Indication: ANXIETY
     Dates: start: 2018
  17. PROPOXYPHEN [Concomitant]
  18. METHYLPREDNISOLONE. [Concomitant]
     Active Substance: METHYLPREDNISOLONE
  19. FOLIC ACID. [Concomitant]
     Active Substance: FOLIC ACID
  20. AMITIZA [Concomitant]
     Active Substance: LUBIPROSTONE
  21. BUTALBITAL [Concomitant]
     Active Substance: BUTALBITAL
  22. ESCITALOPRAM [Concomitant]
     Active Substance: ESCITALOPRAM OXALATE
  23. ESTRADIOL. [Concomitant]
     Active Substance: ESTRADIOL
  24. FUROSEMIDE. [Concomitant]
     Active Substance: FUROSEMIDE
     Dates: start: 2016
  25. PATADAY [Concomitant]
     Active Substance: OLOPATADINE HYDROCHLORIDE
  26. VENTOLIN [Concomitant]
     Active Substance: ALBUTEROL SULFATE
  27. VITAMIN D2 [Concomitant]
     Active Substance: ERGOCALCIFEROL
  28. VOLTAREN [Concomitant]
     Active Substance: DICLOFENAC SODIUM
  29. ALLOPURINOL. [Concomitant]
     Active Substance: ALLOPURINOL
  30. TRIMETHOPRIM. [Concomitant]
     Active Substance: TRIMETHOPRIM
     Dosage: GENERIC
     Route: 065
  31. TRIMETHOPRIM. [Concomitant]
     Active Substance: TRIMETHOPRIM
     Dosage: GENERIC MR
     Route: 065
     Dates: start: 20150304
  32. PROCRIT [Concomitant]
     Active Substance: ERYTHROPOIETIN
  33. NEXIUM [Suspect]
     Active Substance: ESOMEPRAZOLE MAGNESIUM
     Indication: GASTROOESOPHAGEAL REFLUX DISEASE
     Route: 048
     Dates: start: 2009, end: 2014
  34. HYDROCODONE [Concomitant]
     Active Substance: HYDROCODONE
  35. AZELASTINE. [Concomitant]
     Active Substance: AZELASTINE HYDROCHLORIDE
     Dosage: GENERIC MR
     Route: 065
     Dates: start: 20150304
  36. NEXIUM [Suspect]
     Active Substance: ESOMEPRAZOLE MAGNESIUM
     Indication: GASTROOESOPHAGEAL REFLUX DISEASE
     Route: 048
     Dates: start: 2007, end: 2014
  37. LEVETIRACETAM. [Concomitant]
     Active Substance: LEVETIRACETAM
     Indication: SEIZURE
     Dates: start: 2017
  38. CLINDAMYCIN. [Concomitant]
     Active Substance: CLINDAMYCIN
  39. PATANASE [Concomitant]
     Active Substance: OLOPATADINE HYDROCHLORIDE
  40. TRAZADON [Concomitant]
     Active Substance: TRAZODONE HYDROCHLORIDE
  41. SERTRALINE [Concomitant]
     Active Substance: SERTRALINE HYDROCHLORIDE
  42. AZELASTINE. [Concomitant]
     Active Substance: AZELASTINE HYDROCHLORIDE
     Dosage: GENERIC
     Route: 065
  43. ALLOPURINOL. [Concomitant]
     Active Substance: ALLOPURINOL
     Dates: start: 2016
  44. ALPRAZOLAM. [Concomitant]
     Active Substance: ALPRAZOLAM
  45. DIOVAN [Concomitant]
     Active Substance: VALSARTAN
  46. VIGAMOX [Concomitant]
     Active Substance: MOXIFLOXACIN HYDROCHLORIDE
  47. COLCHICINE. [Concomitant]
     Active Substance: COLCHICINE
  48. MECLIZINE [Concomitant]
     Active Substance: MECLIZINE HYDROCHLORIDE

REACTIONS (5)
  - Chronic kidney disease [Not Recovered/Not Resolved]
  - Renal failure [Unknown]
  - Nephrogenic anaemia [Unknown]
  - Acute kidney injury [Unknown]
  - End stage renal disease [Unknown]

NARRATIVE: CASE EVENT DATE: 20130108
